FAERS Safety Report 7274559-3 (Version None)
Quarter: 2011Q1

REPORT INFORMATION
  Report Type: 
  Country: None (occurrence: None)
  Receive Date: 20110204
  Receipt Date: 20110121
  Transmission Date: 20110831
  Serious: Yes (Other)
  Sender: FDA-Public Use
  Company Number: PHHY2011IT06087

PATIENT
  Sex: Female

DRUGS (2)
  1. ASTAR [Concomitant]
     Indication: MEDICAL DIET
  2. SIMVASTATIN [Suspect]
     Indication: HYPERCHOLESTEROLAEMIA
     Dosage: 20 MG, UNK
     Route: 048
     Dates: start: 20100501, end: 20100501

REACTIONS (2)
  - HEADACHE [None]
  - CORNEAL STAINING [None]
